FAERS Safety Report 6310418-8 (Version None)
Quarter: 2009Q3

REPORT INFORMATION
  Report Type: 
  Country: None (occurrence: None)
  Receive Date: 20090814
  Receipt Date: 20090804
  Transmission Date: 20100115
  Serious: Yes (Hospitalization, Other)
  Sender: FDA-Public Use
  Company Number: US-PFIZER INC-2009247176

PATIENT
  Sex: Male
  Weight: 78.005 kg

DRUGS (12)
  1. LYRICA [Suspect]
     Indication: PAIN
     Dosage: 75 MG, 3X/DAY
     Dates: start: 20080101, end: 20090801
  2. LYRICA [Suspect]
     Indication: BACK PAIN
  3. PLAVIX [Concomitant]
     Dosage: 75 MG, UNK
     Route: 048
  4. AVODART [Concomitant]
     Dosage: 0.5 MG, 1X/DAY
     Route: 048
  5. KLONOPIN [Concomitant]
     Dosage: 0.5 MG, 1X/DAY
     Route: 048
  6. METFORMIN HYDROCHLORIDE [Concomitant]
     Indication: DIABETES MELLITUS
     Dosage: 500 MG, 2X/DAY
     Route: 048
  7. PANTOPRAZOLE [Concomitant]
     Dosage: 40 MG, 1X/DAY
     Route: 048
  8. ATENOLOL [Concomitant]
     Dosage: 25 MG, 2X/DAY
     Route: 048
  9. ISOSORBIDE [Concomitant]
     Dosage: 60 MG, 3X/DAY
     Route: 048
  10. VALSARTAN [Concomitant]
     Dosage: 40 MG, 2X/DAY
     Route: 048
  11. ACETYLSALICYLIC ACID [Concomitant]
     Dosage: 81 MG, UNK
     Route: 048
  12. ACETAMINOPHEN [Concomitant]

REACTIONS (6)
  - ABASIA [None]
  - MUSCLE ENZYME INCREASED [None]
  - MUSCULAR WEAKNESS [None]
  - MYALGIA [None]
  - OEDEMA PERIPHERAL [None]
  - STENT PLACEMENT [None]
